FAERS Safety Report 24780336 (Version 8)
Quarter: 2025Q2

REPORT INFORMATION
  Report Type: Spontaneous
  Country: JP (occurrence: JP)
  Receive Date: 20241227
  Receipt Date: 20250619
  Transmission Date: 20250717
  Serious: Yes (Hospitalization)
  Sender: AMGEN
  Company Number: JP-AMGEN-JPNSP2024226478

PATIENT
  Age: 88 Year
  Sex: Female

DRUGS (3)
  1. EVENITY [Suspect]
     Active Substance: ROMOSOZUMAB-AQQG
     Indication: Osteoporosis
     Route: 058
     Dates: start: 20241101, end: 20241206
  2. EVENITY [Suspect]
     Active Substance: ROMOSOZUMAB-AQQG
     Route: 058
     Dates: start: 2025, end: 2025
  3. SULPIRIDE [Concomitant]
     Active Substance: SULPIRIDE

REACTIONS (11)
  - Pain in jaw [Unknown]
  - Pathological fracture [Not Recovered/Not Resolved]
  - Tooth loss [Unknown]
  - Gingival pain [Unknown]
  - Femur fracture [Not Recovered/Not Resolved]
  - Injection site swelling [Unknown]
  - Complication associated with device [Unknown]
  - Spinal fracture [Unknown]
  - Visual acuity reduced [Unknown]
  - Gingival disorder [Unknown]
  - Diplopia [Unknown]

NARRATIVE: CASE EVENT DATE: 20240101
